FAERS Safety Report 14343389 (Version 3)
Quarter: 2018Q3

REPORT INFORMATION
  Report Type: Report from Study
  Country: JP (occurrence: JP)
  Receive Date: 20180102
  Receipt Date: 20180823
  Transmission Date: 20181010
  Serious: Yes (Hospitalization, Other)
  Sender: FDA-Public Use
  Company Number: JP-VIFOR (INTERNATIONAL) INC.-VIT-2017-14444

PATIENT
  Age: 63 Year
  Sex: Female
  Weight: 46.2 kg

DRUGS (42)
  1. VELPHORO [Suspect]
     Active Substance: FERRIC OXYHYDROXIDE
     Indication: HYPERPHOSPHATAEMIA
     Route: 048
     Dates: start: 20160610, end: 20160622
  2. TSYMURA [Concomitant]
     Route: 048
  3. MAXACALCITOL [Concomitant]
     Active Substance: MAXACALCITOL
     Dates: start: 20160808, end: 20161111
  4. WARFARIN POTASSIUM [Concomitant]
     Active Substance: WARFARIN POTASSIUM
     Route: 048
     Dates: start: 20171001, end: 20171006
  5. VELPHORO [Suspect]
     Active Substance: FERRIC OXYHYDROXIDE
     Route: 048
     Dates: start: 20160721, end: 20170310
  6. MAXACALCITOL [Concomitant]
     Active Substance: MAXACALCITOL
     Dates: start: 20171113
  7. WARFARIN POTASSIUM [Concomitant]
     Active Substance: WARFARIN POTASSIUM
     Route: 048
     Dates: start: 20171123, end: 20171206
  8. VELPHORO [Suspect]
     Active Substance: FERRIC OXYHYDROXIDE
     Route: 048
     Dates: start: 20170710, end: 20171011
  9. LAC?B [Concomitant]
     Active Substance: BIFIDOBACTERIUM SPP.
     Route: 048
  10. AMEZINIUM METILSULFATE [Concomitant]
     Active Substance: AMEZINIUM METILSULFATE
     Route: 048
  11. DOPS [Concomitant]
     Active Substance: DROXIDOPA
     Route: 048
  12. ROCALTROL [Concomitant]
     Active Substance: CALCITRIOL
     Dates: end: 20160805
  13. NESP [Concomitant]
     Active Substance: DARBEPOETIN ALFA
     Indication: NEPHROGENIC ANAEMIA
     Dates: end: 20160620
  14. NESP [Concomitant]
     Active Substance: DARBEPOETIN ALFA
     Dates: end: 20170821
  15. WARFARIN POTASSIUM [Concomitant]
     Active Substance: WARFARIN POTASSIUM
     Route: 048
     Dates: end: 20170524
  16. WARFARIN POTASSIUM [Concomitant]
     Active Substance: WARFARIN POTASSIUM
     Route: 048
     Dates: start: 20171102, end: 20171122
  17. VELPHORO [Suspect]
     Active Substance: FERRIC OXYHYDROXIDE
     Route: 048
     Dates: start: 20160623, end: 20160720
  18. VELPHORO [Suspect]
     Active Substance: FERRIC OXYHYDROXIDE
     Route: 048
     Dates: start: 20170311, end: 20170709
  19. FEBURIC [Concomitant]
     Active Substance: FEBUXOSTAT
     Route: 048
     Dates: end: 20170805
  20. NESP [Concomitant]
     Active Substance: DARBEPOETIN ALFA
     Dates: start: 20160912
  21. OLOPATADINE HYDROCHLORIDE. [Concomitant]
     Active Substance: OLOPATADINE HYDROCHLORIDE
     Route: 048
     Dates: start: 20171101
  22. WARFARIN POTASSIUM [Concomitant]
     Active Substance: WARFARIN POTASSIUM
     Route: 048
     Dates: start: 20170525, end: 20170908
  23. LANSOPRAZOLE. [Concomitant]
     Active Substance: LANSOPRAZOLE
     Route: 048
  24. KAYEXALATE [Concomitant]
     Active Substance: SODIUM POLYSTYRENE SULFONATE
     Route: 048
  25. EPOETIN ALFA [Concomitant]
     Active Substance: ERYTHROPOIETIN
     Dates: start: 20160711, end: 20160722
  26. MAXACALCITOL [Concomitant]
     Active Substance: MAXACALCITOL
     Dates: start: 20170116, end: 20171009
  27. WARFARIN POTASSIUM [Concomitant]
     Active Substance: WARFARIN POTASSIUM
     Route: 048
     Dates: start: 20171012, end: 20171018
  28. WARFARIN POTASSIUM [Concomitant]
     Active Substance: WARFARIN POTASSIUM
     Route: 048
     Dates: start: 20171019, end: 20171101
  29. VELPHORO [Suspect]
     Active Substance: FERRIC OXYHYDROXIDE
     Route: 048
     Dates: start: 20171012
  30. ALOSENN [Concomitant]
     Active Substance: SENNA LEAF
     Route: 048
  31. SENNOSIDE A+B [Concomitant]
     Active Substance: SENNOSIDES A AND B
     Route: 048
     Dates: end: 20161221
  32. NESP [Concomitant]
     Active Substance: DARBEPOETIN ALFA
     Dates: start: 20170904, end: 20171009
  33. NESP [Concomitant]
     Active Substance: DARBEPOETIN ALFA
     Dates: start: 20171016
  34. EPOETIN ALFA [Concomitant]
     Active Substance: ERYTHROPOIETIN
     Dates: start: 20160725, end: 20160805
  35. MAXACALCITOL [Concomitant]
     Active Substance: MAXACALCITOL
     Dates: start: 20161114, end: 20170113
  36. WARFARIN POTASSIUM [Concomitant]
     Active Substance: WARFARIN POTASSIUM
     Route: 048
     Dates: start: 20171207
  37. FLUVOXAMINE MALEATE. [Concomitant]
     Active Substance: FLUVOXAMINE MALEATE
     Route: 048
  38. FEXOFENADINE HYDROCHLORIDE. [Concomitant]
     Active Substance: FEXOFENADINE HYDROCHLORIDE
     Route: 048
     Dates: end: 20171031
  39. LENDORMIN D [Concomitant]
     Active Substance: BROTIZOLAM
     Route: 048
  40. FEBURIC [Concomitant]
     Active Substance: FEBUXOSTAT
     Route: 048
  41. NESP [Concomitant]
     Active Substance: DARBEPOETIN ALFA
     Dates: start: 20160627, end: 20160704
  42. MAXACALCITOL [Concomitant]
     Active Substance: MAXACALCITOL
     Dates: start: 20171013, end: 20171110

REACTIONS (2)
  - Abdominal incarcerated hernia [Recovered/Resolved]
  - Stoma site haemorrhage [Recovered/Resolved]

NARRATIVE: CASE EVENT DATE: 20170908
